FAERS Safety Report 7593825-5 (Version None)
Quarter: 2011Q3

REPORT INFORMATION
  Report Type: 
  Country: None (occurrence: None)
  Receive Date: 20110706
  Receipt Date: 20110628
  Transmission Date: 20111222
  Serious: Yes (Death, Hospitalization)
  Sender: FDA-Public Use
  Company Number: ES-JNJFOC-20110611992

PATIENT
  Sex: Male

DRUGS (7)
  1. DACORTIN [Concomitant]
     Route: 065
  2. DACORTIN [Concomitant]
     Indication: PSORIATIC ARTHROPATHY
     Route: 065
  3. DACORTIN [Concomitant]
     Route: 065
  4. REMICADE [Suspect]
     Indication: PSORIATIC ARTHROPATHY
     Route: 042
  5. SIMPONI [Suspect]
     Indication: PSORIATIC ARTHROPATHY
     Route: 058
     Dates: start: 20110101
  6. STEROIDS NOS [Concomitant]
  7. METHOTREXATE [Concomitant]

REACTIONS (1)
  - SEPSIS [None]
